FAERS Safety Report 14618385 (Version 6)
Quarter: 2018Q3

REPORT INFORMATION
  Report Type: Spontaneous
  Country: BR (occurrence: BR)
  Receive Date: 20180309
  Receipt Date: 20180925
  Transmission Date: 20181010
  Serious: Yes (Death, Hospitalization, Other)
  Sender: FDA-Public Use
  Company Number: BR-GLAXOSMITHKLINE-BR2016GSK050374

PATIENT
  Age: 21 Year
  Sex: Female
  Weight: 57 kg

DRUGS (5)
  1. PREDNISONE. [Concomitant]
     Active Substance: PREDNISONE
     Indication: PRODUCT USED FOR UNKNOWN INDICATION
     Dosage: UNK
  2. WARFARIN [Concomitant]
     Active Substance: WARFARIN
     Indication: PRODUCT USED FOR UNKNOWN INDICATION
     Dosage: UNK
  3. BENLYSTA [Suspect]
     Active Substance: BELIMUMAB
     Indication: SYSTEMIC LUPUS ERYTHEMATOSUS
     Dosage: UNK
     Dates: start: 20160411
  4. RANITIDINE. [Concomitant]
     Active Substance: RANITIDINE
     Indication: PRODUCT USED FOR UNKNOWN INDICATION
     Dosage: UNK
  5. CYCLOBENZAPRINE HYDROCHLORIDE. [Concomitant]
     Active Substance: CYCLOBENZAPRINE HYDROCHLORIDE
     Indication: PRODUCT USED FOR UNKNOWN INDICATION
     Dosage: UNK

REACTIONS (19)
  - Pulmonary thrombosis [Fatal]
  - Urinary tract infection [Unknown]
  - Inappropriate schedule of drug administration [Recovered/Resolved]
  - Systemic lupus erythematosus [Fatal]
  - Infection [Fatal]
  - Circumstance or information capable of leading to medication error [Recovered/Resolved]
  - Pyrexia [Recovered/Resolved]
  - Oropharyngeal pain [Recovered/Resolved]
  - Pain [Unknown]
  - Dyspnoea [Unknown]
  - Asthenia [Unknown]
  - Drug dose omission [Not Recovered/Not Resolved]
  - Pneumonia [Fatal]
  - Somnolence [Recovered/Resolved]
  - Laboratory test abnormal [Recovered/Resolved]
  - Kidney infection [Recovered/Resolved]
  - Swelling [Unknown]
  - Headache [Recovered/Resolved]
  - Hunger [Recovered/Resolved]

NARRATIVE: CASE EVENT DATE: 20160801
